FAERS Safety Report 23264667 (Version 1)
Quarter: 2023Q4

REPORT INFORMATION
  Report Type: Spontaneous
  Country: CH (occurrence: CH)
  Receive Date: 20231205
  Receipt Date: 20231205
  Transmission Date: 20240110
  Serious: Yes (Hospitalization, Other)
  Sender: FDA-Public Use
  Company Number: None

PATIENT
  Age: 7 Decade
  Sex: Female

DRUGS (31)
  1. PREDNISONE [Suspect]
     Active Substance: PREDNISONE
     Indication: Drug-induced liver injury
     Dosage: 30 MILLIGRAM
     Route: 065
     Dates: start: 2022, end: 2022
  2. PREDNISONE [Suspect]
     Active Substance: PREDNISONE
     Indication: Cholestasis
     Dosage: 10 MILLIGRAM
     Route: 065
     Dates: start: 2022, end: 2022
  3. PREDNISONE [Suspect]
     Active Substance: PREDNISONE
     Dosage: 60 MILLIGRAM
     Route: 065
     Dates: start: 2022, end: 2022
  4. PREDNISONE [Suspect]
     Active Substance: PREDNISONE
     Dosage: 5 MILLIGRAM
     Route: 065
     Dates: start: 2022, end: 2022
  5. PREDNISONE [Suspect]
     Active Substance: PREDNISONE
     Dosage: 30 MILLIGRAM
     Route: 065
     Dates: start: 2022, end: 2022
  6. PREDNISONE [Suspect]
     Active Substance: PREDNISONE
     Dosage: 40 MILLIGRAM
     Route: 065
     Dates: start: 2022, end: 2022
  7. PREDNISONE [Suspect]
     Active Substance: PREDNISONE
     Dosage: 10 MILLIGRAM
     Route: 065
     Dates: start: 2022, end: 2022
  8. PREDNISONE [Suspect]
     Active Substance: PREDNISONE
     Dosage: 20 MILLIGRAM
     Route: 065
     Dates: start: 2022, end: 2022
  9. PREDNISONE [Suspect]
     Active Substance: PREDNISONE
     Dosage: 10 MILLIGRAM
     Route: 065
     Dates: start: 2022, end: 2022
  10. PREDNISONE [Suspect]
     Active Substance: PREDNISONE
     Dosage: 7.5 MILLIGRAM
     Route: 065
     Dates: start: 2022, end: 2022
  11. PREDNISONE [Suspect]
     Active Substance: PREDNISONE
     Dosage: 5 MILLIGRAM
     Route: 065
     Dates: start: 2022, end: 2022
  12. METHYLPREDNISOLONE [Suspect]
     Active Substance: METHYLPREDNISOLONE
     Indication: Cholestasis
     Dosage: 125 MILLIGRAM
     Route: 065
     Dates: start: 202203, end: 202203
  13. METHYLPREDNISOLONE [Suspect]
     Active Substance: METHYLPREDNISOLONE
     Indication: Drug-induced liver injury
  14. VEMURAFENIB [Concomitant]
     Active Substance: VEMURAFENIB
     Indication: Metastatic malignant melanoma
     Dosage: UNK
     Route: 065
     Dates: start: 202204, end: 2022
  15. VEMURAFENIB [Concomitant]
     Active Substance: VEMURAFENIB
     Indication: Metastases to central nervous system
     Dosage: UNK
     Route: 065
     Dates: start: 202207, end: 202208
  16. VEMURAFENIB [Concomitant]
     Active Substance: VEMURAFENIB
     Indication: Metastases to lung
  17. VEMURAFENIB [Concomitant]
     Active Substance: VEMURAFENIB
     Indication: Metastases to adrenals
  18. VEMURAFENIB [Concomitant]
     Active Substance: VEMURAFENIB
     Indication: Metastases to liver
  19. VEMURAFENIB [Concomitant]
     Active Substance: VEMURAFENIB
     Indication: Metastases to bone
  20. COBIMETINIB [Concomitant]
     Active Substance: COBIMETINIB
     Indication: Metastases to central nervous system
     Dosage: UNK
     Route: 065
     Dates: start: 202204, end: 2022
  21. COBIMETINIB [Concomitant]
     Active Substance: COBIMETINIB
     Indication: Metastatic malignant melanoma
     Dosage: UNK
     Route: 065
     Dates: start: 202207, end: 202208
  22. COBIMETINIB [Concomitant]
     Active Substance: COBIMETINIB
     Indication: Metastases to bone
  23. COBIMETINIB [Concomitant]
     Active Substance: COBIMETINIB
     Indication: Metastases to liver
  24. COBIMETINIB [Concomitant]
     Active Substance: COBIMETINIB
     Indication: Metastases to adrenals
  25. COBIMETINIB [Concomitant]
     Active Substance: COBIMETINIB
     Indication: Metastases to lung
  26. ATEZOLIZUMAB [Concomitant]
     Active Substance: ATEZOLIZUMAB
     Indication: Metastatic malignant melanoma
     Dosage: UNK
     Route: 065
     Dates: start: 202204, end: 202208
  27. ATEZOLIZUMAB [Concomitant]
     Active Substance: ATEZOLIZUMAB
     Indication: Metastases to central nervous system
  28. ATEZOLIZUMAB [Concomitant]
     Active Substance: ATEZOLIZUMAB
     Indication: Metastases to bone
  29. ATEZOLIZUMAB [Concomitant]
     Active Substance: ATEZOLIZUMAB
     Indication: Metastases to lung
  30. ATEZOLIZUMAB [Concomitant]
     Active Substance: ATEZOLIZUMAB
     Indication: Metastases to adrenals
  31. ATEZOLIZUMAB [Concomitant]
     Active Substance: ATEZOLIZUMAB
     Indication: Metastases to liver

REACTIONS (8)
  - Cholestatic liver injury [Recovered/Resolved]
  - Condition aggravated [Recovered/Resolved]
  - Cholangitis sclerosing [Recovered/Resolved]
  - Klebsiella infection [Recovered/Resolved]
  - Liver abscess [Recovered/Resolved]
  - Bacteraemia [Recovered/Resolved]
  - Enterococcal infection [Recovered/Resolved]
  - Off label use [Unknown]

NARRATIVE: CASE EVENT DATE: 20220801
